FAERS Safety Report 14357073 (Version 2)
Quarter: 2024Q1

REPORT INFORMATION
  Report Type: Spontaneous
  Country: BE (occurrence: BE)
  Receive Date: 20180105
  Receipt Date: 20240313
  Transmission Date: 20240410
  Serious: Yes (Death, Other)
  Sender: FDA-Public Use
  Company Number: BE-FRESENIUS KABI-FK201710577

PATIENT
  Age: 27 Year
  Sex: Female

DRUGS (11)
  1. CYCLOPHOSPHAMIDE [Suspect]
     Active Substance: CYCLOPHOSPHAMIDE
     Indication: Bone marrow conditioning regimen
     Dosage: PRN
     Route: 065
     Dates: start: 2014
  2. CYCLOPHOSPHAMIDE [Suspect]
     Active Substance: CYCLOPHOSPHAMIDE
     Dosage: POST GRAFT INFUSION
     Route: 042
     Dates: start: 2014
  3. MYCOPHENOLATE MOFETIL [Suspect]
     Active Substance: MYCOPHENOLATE MOFETIL
     Indication: Prophylaxis against graft versus host disease
     Dosage: PRN
     Route: 065
     Dates: start: 2014
  4. THYMOCYTE IMMUNE GLOBULIN NOS [Suspect]
     Active Substance: THYMOCYTE IMMUNE GLOBULIN NOS
     Indication: Bone marrow conditioning regimen
     Dosage: PRN
     Route: 065
     Dates: start: 2014
  5. BUSULFAN [Suspect]
     Active Substance: BUSULFAN
     Indication: Bone marrow conditioning regimen
     Dosage: PRN
     Route: 065
     Dates: start: 2014
  6. TACROLIMUS [Suspect]
     Active Substance: TACROLIMUS
     Indication: Prophylaxis against graft versus host disease
     Dosage: PRN
     Route: 065
     Dates: start: 2014
  7. FLUDARABINE [Suspect]
     Active Substance: FLUDARABINE PHOSPHATE
     Indication: Bone marrow conditioning regimen
     Dosage: PRN
     Route: 065
     Dates: start: 2014
  8. CYTARABINE [Concomitant]
     Active Substance: CYTARABINE
     Indication: Acute myeloid leukaemia
     Dosage: HIGH DOSE (CONSOLIDATION THERAPY), PRN
     Route: 065
     Dates: start: 2012
  9. CYTARABINE [Concomitant]
     Active Substance: CYTARABINE
     Indication: Acute myeloid leukaemia recurrent
     Dosage: SALVAGE THERAPY, PRN
     Route: 065
     Dates: start: 201404
  10. PEGFILGRASTIM [Concomitant]
     Active Substance: PEGFILGRASTIM
     Indication: Product used for unknown indication
     Dosage: CONSOLIDATION THERAPY ALONG WITH ARA-C, PRN
     Route: 065
     Dates: start: 2012
  11. IDARUBICIN [Concomitant]
     Active Substance: IDARUBICIN
     Indication: Acute myeloid leukaemia recurrent
     Dosage: SALVAGE THERAPY, PRN
     Route: 065
     Dates: start: 201404

REACTIONS (7)
  - Hepatic failure [Fatal]
  - Cytomegalovirus infection reactivation [Unknown]
  - Pancytopenia [Unknown]
  - Staphylococcal sepsis [Unknown]
  - Adenoviral hepatitis [Unknown]
  - Myelosuppression [Unknown]
  - Oral candidiasis [Unknown]
